FAERS Safety Report 10152781 (Version 1)
Quarter: 2014Q2

REPORT INFORMATION
  Report Type: Spontaneous
  Country: PE (occurrence: PE)
  Receive Date: 20140505
  Receipt Date: 20140505
  Transmission Date: 20141212
  Serious: Yes (Hospitalization)
  Sender: FDA-Public Use
  Company Number: PE-PFIZER INC-2014119388

PATIENT
  Age: 76 Year
  Sex: Female

DRUGS (1)
  1. NORVASTOR [Suspect]
     Dosage: UNK
     Route: 048

REACTIONS (1)
  - Respiratory disorder [Not Recovered/Not Resolved]
